FAERS Safety Report 8229593-3 (Version None)
Quarter: 2012Q1

REPORT INFORMATION
  Report Type: 
  Country: None (occurrence: None)
  Receive Date: 20120322
  Receipt Date: 20120313
  Transmission Date: 20120608
  Serious: Yes (Hospitalization)
  Sender: FDA-Public Use
  Company Number: PHHO2011GB021811

PATIENT
  Sex: Female

DRUGS (7)
  1. AFINITOR [Suspect]
     Indication: BREAST CANCER METASTATIC
     Dosage: CODE NOT BROKEN
     Dates: start: 20111215
  2. BLINDED NO TREATMENT RECEIVED [Suspect]
     Indication: BREAST CANCER METASTATIC
     Dosage: CODE NOT BROKEN
     Dates: start: 20111215
  3. VINORELBINE [Suspect]
     Indication: BREAST CANCER METASTATIC
     Dosage: UNK
     Dates: start: 20111215, end: 20111229
  4. PLACEBO [Suspect]
     Indication: BREAST CANCER METASTATIC
     Dosage: CODE NOT BROKEN
     Dates: start: 20111215
  5. COMPARATOR TRASTUZUMAB [Suspect]
     Indication: BREAST CANCER METASTATIC
     Dosage: UNK
     Dates: start: 20111215
  6. DICLOFENAC SODIUM [Suspect]
     Indication: PAIN
  7. VINORELBINE [Suspect]
     Dosage: UNK
     Dates: start: 20120104

REACTIONS (1)
  - NEUTROPENIC SEPSIS [None]
